FAERS Safety Report 21743335 (Version 1)
Quarter: 2022Q4

REPORT INFORMATION
  Report Type: Spontaneous
  Country: US (occurrence: US)
  Receive Date: 20221217
  Receipt Date: 20221217
  Transmission Date: 20230112
  Serious: No
  Sender: FDA-Public Use
  Company Number: US-VIIV HEALTHCARE LIMITED-US2022AMR187832

PATIENT
  Age: 50 Year
  Sex: Male

DRUGS (2)
  1. RILPIVIRINE [Suspect]
     Active Substance: RILPIVIRINE
     Indication: HIV infection
     Dosage: 3 ML, Z 400MG/600 MG ONCE MONTHLY
     Route: 065
  2. CABOTEGRAVIR [Suspect]
     Active Substance: CABOTEGRAVIR
     Indication: HIV infection
     Dosage: 3 ML, Z 400MG/600 MG ONCE MONTHLY
     Route: 065

REACTIONS (2)
  - Injection site pain [Not Recovered/Not Resolved]
  - Blood pressure increased [Not Recovered/Not Resolved]
